FAERS Safety Report 6227384-6 (Version None)
Quarter: 2009Q2

REPORT INFORMATION
  Report Type: 
  Country: None (occurrence: None)
  Receive Date: 20090610
  Receipt Date: 20090602
  Transmission Date: 20091009
  Serious: Yes (Other)
  Sender: FDA-Public Use
  Company Number: 2009SP012169

PATIENT
  Age: 4 Year
  Sex: Female

DRUGS (1)
  1. CLARITIN [Suspect]
     Indication: DERMATITIS ATOPIC
     Dosage: 0.5 GM; ; PO
     Route: 048
     Dates: start: 20090518, end: 20090529

REACTIONS (1)
  - ALOPECIA [None]
